FAERS Safety Report 4704665-6 (Version None)
Quarter: 2005Q2

REPORT INFORMATION
  Report Type: 
  Country: None (occurrence: None)
  Receive Date: 20050629
  Receipt Date: 20050616
  Transmission Date: 20051028
  Serious: Yes (Hospitalization)
  Sender: FDA-Public Use
  Company Number: A-CH2005-09138

PATIENT
  Age: 63 Year
  Sex: Female
  Weight: 43 kg

DRUGS (8)
  1. ZAVESCA [Suspect]
     Indication: GAUCHER'S DISEASE
     Dosage: SEE IMAGE
     Route: 048
     Dates: end: 20050601
  2. ZAVESCA [Suspect]
     Indication: GAUCHER'S DISEASE
     Dosage: SEE IMAGE
     Route: 048
     Dates: start: 20041124
  3. HYZAAR [Concomitant]
  4. FOSAMAX (ALENDORNATE SODUM) [Concomitant]
  5. VITAMIN (CALCIUM) [Concomitant]
  6. VITAMIN D3 (COLECALCIFEROL) [Concomitant]
  7. MODAPAR (LEVODOPA, BENSERAZIDE HYDROCHLORIDE) [Concomitant]
  8. ACETAMINOPHEN W/ PROPOXYPHENE HCL [Concomitant]

REACTIONS (6)
  - CONDITION AGGRAVATED [None]
  - DEPRESSION [None]
  - DRUG EFFECT DECREASED [None]
  - GENERAL PHYSICAL HEALTH DETERIORATION [None]
  - PARKINSON'S DISEASE [None]
  - WEIGHT DECREASED [None]
